FAERS Safety Report 11654548 (Version 2)
Quarter: 2016Q1

REPORT INFORMATION
  Report Type: Spontaneous
  Country: None (occurrence: GT)
  Receive Date: 20151023
  Receipt Date: 20160111
  Transmission Date: 20160525
  Serious: Yes (Other)
  Sender: FDA-Public Use
  Company Number: GT-MERCK KGAA-1043316

PATIENT

DRUGS (1)
  1. NOVOTHYROX [Suspect]
     Active Substance: LEVOTHYROXINE SODIUM

REACTIONS (7)
  - Benign neoplasm [None]
  - Depression [None]
  - Overweight [None]
  - Shock [None]
  - Anxiety [None]
  - Diabetes mellitus [None]
  - Migraine [None]
